FAERS Safety Report 4599130-3 (Version None)
Quarter: 2005Q1

REPORT INFORMATION
  Report Type: 
  Country: None (occurrence: None)
  Receive Date: 20050302
  Receipt Date: 20050217
  Transmission Date: 20050727
  Serious: Yes (Hospitalization)
  Sender: FDA-Public Use
  Company Number: TNZFR200500002

PATIENT
  Age: 47 Year
  Sex: Female

DRUGS (3)
  1. INNOHEP [Suspect]
     Indication: THROMBOSIS PROPHYLAXIS
     Dosage: 3500 IU (3500 IU, ONCE DAILY). SUBCUTANEOUS
     Route: 058
     Dates: start: 20041214, end: 20041130
  2. MERCILON (DESOGESTREL W/ESTRADIOL) [Concomitant]
  3. DI-ANTALVIC (DI-GESIC) [Suspect]

REACTIONS (5)
  - BRAIN OEDEMA [None]
  - HEADACHE [None]
  - SPEECH DISORDER [None]
  - VERTIGO [None]
  - VISUAL DISTURBANCE [None]
